FAERS Safety Report 8816394 (Version 1)
Quarter: 2012Q4

REPORT INFORMATION
  Report Type: Spontaneous
  Country: US (occurrence: None)
  Receive Date: 20120928
  Receipt Date: 20120928
  Transmission Date: 20130627
  Serious: Yes (Life-Threatening)
  Sender: FDA-Public Use
  Company Number: None

PATIENT
  Sex: Female

DRUGS (1)
  1. COPAXONE TEVA [Suspect]
     Indication: MS
     Dosage: 20mg qday sq
     Route: 058
     Dates: start: 20120305, end: 20120927

REACTIONS (2)
  - Blood pressure increased [None]
  - Epistaxis [None]
